FAERS Safety Report 21645573 (Version 3)
Quarter: 2023Q1

REPORT INFORMATION
  Report Type: Other
  Country: ES (occurrence: ES)
  Receive Date: 20221126
  Receipt Date: 20230115
  Transmission Date: 20230418
  Serious: Yes (Other)
  Sender: FDA-Public Use
  Company Number: ES-CELLTRION INC.-2022ES019548

PATIENT

DRUGS (1)
  1. RITUXIMAB [Suspect]
     Active Substance: RITUXIMAB
     Indication: Product used for unknown indication
     Dosage: THE DATE OF THE INFUSION WAS ON 19/OCT/2022.
     Dates: start: 20221019

REACTIONS (5)
  - Carotid artery dissection [Unknown]
  - Thrombotic stroke [Unknown]
  - Cerebellar stroke [Unknown]
  - Thalamic stroke [Unknown]
  - Off label use [Unknown]
